FAERS Safety Report 9897747 (Version 4)
Quarter: 2014Q4

REPORT INFORMATION
  Report Type: Report from Study
  Country: US (occurrence: US)
  Receive Date: 20140214
  Receipt Date: 20141020
  Transmission Date: 20150529
  Serious: No
  Sender: FDA-Public Use
  Company Number: US-ALEXION-A201400415

PATIENT

DRUGS (5)
  1. LOSARTAN [Concomitant]
     Active Substance: LOSARTAN
     Indication: PRODUCT USED FOR UNKNOWN INDICATION
     Route: 065
  2. PENICILLIN                         /00000901/ [Concomitant]
     Active Substance: PENICILLIN
     Indication: ANTIBIOTIC PROPHYLAXIS
     Dosage: 250 MG, BID
     Route: 065
     Dates: start: 20130203
  3. PREDNISONE. [Suspect]
     Active Substance: PREDNISONE
     Indication: STEROID THERAPY
     Dosage: UNK UNK, QD
     Route: 065
     Dates: start: 20130401
  4. PREDNISONE. [Suspect]
     Active Substance: PREDNISONE
     Dosage: 5 MG, EVERY OTHER DAY
     Route: 065
  5. SOLIRIS [Suspect]
     Active Substance: ECULIZUMAB
     Indication: HAEMOLYTIC URAEMIC SYNDROME
     Dosage: 600 MG, Q2W
     Route: 042
     Dates: start: 20130202

REACTIONS (12)
  - Enuresis [Recovered/Resolved]
  - Abdominal pain upper [Unknown]
  - Sleep apnoea syndrome [Unknown]
  - Diarrhoea [Unknown]
  - Headache [Unknown]
  - Headache [Unknown]
  - Enuresis [Not Recovered/Not Resolved]
  - Vomiting [Unknown]
  - Abdominal discomfort [Unknown]
  - Dehydration [Unknown]
  - Tonsillar hypertrophy [Unknown]
  - Snoring [Unknown]

NARRATIVE: CASE EVENT DATE: 20130401
